FAERS Safety Report 11318196 (Version 1)
Quarter: 2015Q3

REPORT INFORMATION
  Report Type: Spontaneous
  Country: US (occurrence: US)
  Receive Date: 20150728
  Receipt Date: 20150728
  Transmission Date: 20151125
  Serious: Yes (Other)
  Sender: FDA-Public Use
  Company Number: US-BAXTER-2015BAX039803

PATIENT
  Age: 23 Year
  Sex: Male

DRUGS (4)
  1. POTASSIUM CHLORIDE. [Concomitant]
     Active Substance: POTASSIUM CHLORIDE
     Indication: FAMILIAL PERIODIC PARALYSIS
     Route: 048
  2. ACETAZOLAMIDE. [Concomitant]
     Active Substance: ACETAZOLAMIDE
     Indication: PROPHYLAXIS
     Route: 065
  3. POTASSIUM CHLORIDE IN 5% DEXTROSE INJECTION, USP [Suspect]
     Active Substance: DEXTROSE\POTASSIUM CHLORIDE
     Indication: FAMILIAL PERIODIC PARALYSIS
     Dosage: 50 MEQ
     Route: 042
  4. 0.9% SODIUM CHLORIDE INJECTION [Suspect]
     Active Substance: SODIUM CHLORIDE
     Indication: PRODUCT USED FOR UNKNOWN INDICATION
     Route: 042

REACTIONS (4)
  - Muscular weakness [Recovered/Resolved]
  - Blood potassium decreased [Recovered/Resolved]
  - Electrocardiogram T wave amplitude decreased [Recovered/Resolved]
  - Hypokinesia [Recovered/Resolved]
